FAERS Safety Report 8976114 (Version 1)
Quarter: 2012Q4

REPORT INFORMATION
  Report Type: 
  Country: AU (occurrence: AU)
  Receive Date: 20121220
  Receipt Date: 20121220
  Transmission Date: 20130627
  Serious: Yes (Other)
  Sender: FDA-Public Use
  Company Number: PHHY2012AU112198

PATIENT
  Age: 76 None
  Sex: Female

DRUGS (10)
  1. ACLASTA [Suspect]
     Dosage: 5 mg, UNK
     Route: 042
     Dates: start: 20111212
  2. NEXIUM [Concomitant]
     Indication: GASTROOESOPHAGEAL REFLUX DISEASE
     Dosage: 20 mg, UNK
     Route: 048
  3. FELODUR [Concomitant]
     Indication: HYPERTENSION
     Dosage: 10 mg, UNK
     Route: 048
  4. SPIRIVA [Concomitant]
     Indication: CHRONIC OBSTRUCTIVE PULMONARY DISEASE
     Dosage: 16 mg, UNK
     Route: 048
  5. ASPIRIN [Concomitant]
     Dosage: 100 mg, UNK
     Route: 048
  6. PANADOL OSTEO [Concomitant]
     Indication: ARTHRALGIA
     Dosage: 6654 mg, UNK
  7. SERETIDE [Concomitant]
     Indication: BRONCHITIS
     Dosage: 120 doses 1-2 puffs twice daily
  8. ASTRIX [Concomitant]
     Dosage: 100 mg, UNK
  9. VENTOLIN [Concomitant]
     Indication: COUGH
     Dosage: 2 puffs 3-4 times a day
  10. OSTELIN VITAMIN D [Concomitant]
     Dosage: 25 ug, QD

REACTIONS (5)
  - Osteoporotic fracture [Unknown]
  - Anion gap increased [Unknown]
  - Blood glucose increased [Unknown]
  - Blood thyroid stimulating hormone increased [Unknown]
  - Vitamin D decreased [Unknown]
